FAERS Safety Report 18498967 (Version 1)
Quarter: 2020Q4

REPORT INFORMATION
  Report Type: Spontaneous
  Country: FR (occurrence: FR)
  Receive Date: 20201113
  Receipt Date: 20201113
  Transmission Date: 20210114
  Serious: Yes (Other)
  Sender: FDA-Public Use
  Company Number: FR-ACCORD-208192

PATIENT
  Age: 64 Year
  Sex: Female
  Weight: 84 kg

DRUGS (1)
  1. PACLITAXEL AHCL [Suspect]
     Active Substance: PACLITAXEL
     Indication: CERVIX CARCINOMA
     Route: 041
     Dates: start: 20200520, end: 20200828

REACTIONS (2)
  - Off label use [Unknown]
  - Infusion related reaction [Recovered/Resolved]

NARRATIVE: CASE EVENT DATE: 20200728
